FAERS Safety Report 8880115 (Version 1)
Quarter: 2012Q4

REPORT INFORMATION
  Report Type: 
  Country: HU (occurrence: HU)
  Receive Date: 20121031
  Receipt Date: 20121031
  Transmission Date: 20130627
  Serious: Yes (Other)
  Sender: FDA-Public Use
  Company Number: HU-ASTRAZENECA-2012SE80386

PATIENT
  Age: 65 Year
  Sex: Female

DRUGS (1)
  1. SYMBICORT TURBUHALER [Suspect]
     Indication: ASTHMA
     Dosage: 160 MCG, TWO PUFF TWO TIMES A DAY
     Route: 055
     Dates: start: 20120601, end: 20121017

REACTIONS (2)
  - Psoriasis [Unknown]
  - Muscle spasms [Unknown]
